FAERS Safety Report 9275231 (Version 4)
Quarter: 2013Q4

REPORT INFORMATION
  Report Type: Spontaneous
  Country: US (occurrence: None)
  Receive Date: 20130430
  Receipt Date: 20131004
  Transmission Date: 20140711
  Serious: Yes (Hospitalization, Other)
  Sender: FDA-Public Use
  Company Number: 2012-002861

PATIENT
  Age: 72 Year
  Sex: Female

DRUGS (24)
  1. ACTONEL (RISEDRONATE SODIUM) TABLET, UNKMG [Suspect]
     Indication: OSTEOPOROSIS PROPHYLAXIS
     Dosage: 35MG ONCE WEEKLY, ORAL
     Route: 048
     Dates: start: 200302, end: 200812
  2. FOSAMAX (ALENDRONATE SODIUM) [Suspect]
     Indication: OSTEOPOROSIS
     Route: 048
  3. ALENDRONATE SODIUM (ALENDRONATE SODIUM) (ALENDRONATE SODIUM) [Suspect]
     Indication: OSTEOPOROSIS
     Dosage: 70MG WEEKLY, ORAL
     Route: 048
     Dates: start: 200901, end: 201005
  4. VAGIFEM (ESTRADIOL) [Concomitant]
  5. DETROL LA (TOLTERODINE L-TARTRATE) [Concomitant]
  6. AGGRENOX (ACETYLSALICYLIC ACID, DIPYRIDAMOLE) [Concomitant]
  7. ZIAC (BISOPROLOL FUMARATE, HYDROCHLOROTHIAZIDE) [Concomitant]
  8. VYTORIN (EZETIMIBE, SIMVASTATIN) [Concomitant]
  9. LEVOTHYROXINE (LEVOTHYROXINE) [Concomitant]
  10. FISH OIL (FISH OIL) [Concomitant]
  11. CRANBERRY/01512301/(VACCINIUM MACROCARPON) [Concomitant]
  12. MELATONIN (MELATONIN) [Concomitant]
  13. MULTIVITAMIN/00831701/(VITAMINS NOS) [Concomitant]
  14. OSCALD (CALCIUM CARBONATE, COLECALCIFEROL) [Concomitant]
  15. FERROUS SULFATE (FERROUS SULFATE) [Concomitant]
  16. VITAMIN C [Concomitant]
  17. VITAMIN E (TOCOPHEROL) [Concomitant]
  18. PRAVACHOL (PRAVASTATIN SODIUM) [Concomitant]
  19. ZOCOR (SIMVASTATIN) [Concomitant]
  20. CRESTOR (ROSUVASTATIN CALCIUM) [Concomitant]
  21. METFORMIN (METFORMIN) [Concomitant]
  22. NITROFURANTOIN [Concomitant]
  23. HYDROCODONE BITARTRATE AND ACETAMINOPHEN (HYDROCODONE BITARTRATE, PARACETAMOL) [Concomitant]
  24. CINNAMON [Concomitant]

REACTIONS (11)
  - Pain in extremity [None]
  - Stress fracture [None]
  - Low turnover osteopathy [None]
  - Pain [None]
  - Femur fracture [None]
  - Gait disturbance [None]
  - Muscular weakness [None]
  - Fracture displacement [None]
  - Fall [None]
  - Bursitis [None]
  - Arthralgia [None]
